FAERS Safety Report 11489551 (Version 1)
Quarter: 2015Q3

REPORT INFORMATION
  Report Type: Spontaneous
  Country: IT (occurrence: IT)
  Receive Date: 20150909
  Receipt Date: 20150909
  Transmission Date: 20151125
  Serious: Yes (Hospitalization)
  Sender: FDA-Public Use
  Company Number: IT-TEVA-590962ACC

PATIENT
  Age: 42 Year
  Sex: Female

DRUGS (2)
  1. LUZUL - LABORATORI BALDACCI S.P.A. [Suspect]
     Active Substance: LORMETAZEPAM
     Indication: ANXIETY
     Dosage: 100 MILLIGRAM DAILY; 100 MG DAILY,ORAL DROPS, SOLUTION
     Route: 048
     Dates: start: 20130101, end: 20150601
  2. ZOLPIDEM TARTRATE. [Suspect]
     Active Substance: ZOLPIDEM TARTRATE
     Indication: ANXIETY
     Dosage: 40 MILLIGRAM DAILY; 40 MG DAILY
     Route: 048
     Dates: start: 20140601, end: 20150601

REACTIONS (1)
  - Drug dependence [Recovering/Resolving]

NARRATIVE: CASE EVENT DATE: 20150601
